FAERS Safety Report 25789131 (Version 1)
Quarter: 2025Q3

REPORT INFORMATION
  Report Type: Spontaneous
  Country: US (occurrence: US)
  Receive Date: 20250911
  Receipt Date: 20250911
  Transmission Date: 20251020
  Serious: Yes (Death, Life-Threatening, Hospitalization, Other)
  Sender: ACCORD
  Company Number: US-Accord-419508

PATIENT
  Age: 55 Year
  Sex: Female

DRUGS (1)
  1. ALLOPURINOL [Suspect]
     Active Substance: ALLOPURINOL
     Indication: Gout

REACTIONS (9)
  - Drug reaction with eosinophilia and systemic symptoms [Fatal]
  - Acute kidney injury [Fatal]
  - Immune thrombocytopenia [Fatal]
  - Staphylococcal bacteraemia [Fatal]
  - Acute respiratory distress syndrome [Fatal]
  - Septic shock [Fatal]
  - Acute hepatic failure [Fatal]
  - Encephalopathy [Fatal]
  - Condition aggravated [Fatal]
